FAERS Safety Report 14681291 (Version 12)
Quarter: 2019Q2

REPORT INFORMATION
  Report Type: Spontaneous
  Country: PR (occurrence: PR)
  Receive Date: 20180326
  Receipt Date: 20190528
  Transmission Date: 20190711
  Serious: Yes (Hospitalization)
  Sender: FDA-Public Use
  Company Number: PR-PFIZER INC-2018120649

PATIENT
  Age: 78 Year
  Sex: Male
  Weight: 78 kg

DRUGS (13)
  1. SUTENT [Suspect]
     Active Substance: SUNITINIB MALATE
     Dosage: 25 MG, CYCLIC (DAILY FOR 28 DAYS ON / 14 DAYS OFF)
     Route: 048
     Dates: start: 20180428, end: 20180528
  2. DITROPAN [Concomitant]
     Active Substance: OXYBUTYNIN CHLORIDE
     Dosage: UNK, ALTERNATE DAY
     Dates: start: 20180911
  3. FUROSEMIDE. [Concomitant]
     Active Substance: FUROSEMIDE
     Dosage: 20 MG, UNK
     Dates: start: 20190120
  4. AMLODIPINE [Concomitant]
     Active Substance: AMLODIPINE BESYLATE
     Indication: OEDEMA PERIPHERAL
     Dosage: 5 MG, DAILY
     Dates: start: 20180816, end: 20181008
  5. DITROPAN [Concomitant]
     Active Substance: OXYBUTYNIN CHLORIDE
     Dosage: UNK
     Dates: start: 20080411, end: 20180901
  6. FOLIC ACID. [Concomitant]
     Active Substance: FOLIC ACID
     Dosage: 800 UG, UNK
  7. SUTENT [Suspect]
     Active Substance: SUNITINIB MALATE
     Indication: RENAL CANCER STAGE IV
     Dosage: 50 MG, CYCLIC (28 DAYS ON/14 DAYS OFF)
     Route: 048
     Dates: start: 20180309, end: 201803
  8. SUTENT [Suspect]
     Active Substance: SUNITINIB MALATE
     Dosage: 50 MG, CYCLIC (FOR 28 DAYS 14 DAYS REST)
     Route: 048
     Dates: start: 20180315, end: 20180413
  9. METOPROLOL. [Concomitant]
     Active Substance: METOPROLOL
     Dosage: UNK, AS NEEDED
  10. VITAMIN C ACID [Concomitant]
     Active Substance: ASCORBIC ACID
     Dosage: 1000 MG, UNK
  11. LIPITOR [Concomitant]
     Active Substance: ATORVASTATIN CALCIUM
     Indication: HEPATIC ENZYME INCREASED
     Dosage: UNK
     Dates: start: 2008, end: 20181126
  12. SUTENT [Suspect]
     Active Substance: SUNITINIB MALATE
     Dosage: 37.5 MG, CYCLIC (DAILY, FOR 28 DAYS ON / 14 DAYS OFF)
     Route: 048
     Dates: start: 20180609, end: 20190402
  13. ACYCLOVIR. [Concomitant]
     Active Substance: ACYCLOVIR
     Dosage: 800 MG,TEMPORARY 14 DAYS TEMPORARY 14 DAYS
     Dates: start: 20180407

REACTIONS (16)
  - Abdominal pain upper [Recovered/Resolved]
  - Dysgeusia [Recovered/Resolved]
  - Weight decreased [Not Recovered/Not Resolved]
  - Oral pain [Recovered/Resolved]
  - Hepatic enzyme increased [Not Recovered/Not Resolved]
  - Skin exfoliation [Recovered/Resolved]
  - Decreased appetite [Unknown]
  - Haemoglobin decreased [Unknown]
  - Hypertension [Recovering/Resolving]
  - Nasal disorder [Not Recovered/Not Resolved]
  - Abdominal distension [Recovered/Resolved]
  - Dyspepsia [Unknown]
  - Diarrhoea [Recovered/Resolved]
  - Blister [Recovered/Resolved]
  - Thyroid disorder [Not Recovered/Not Resolved]
  - Vomiting [Unknown]

NARRATIVE: CASE EVENT DATE: 2018
